FAERS Safety Report 5106845-7 (Version None)
Quarter: 2006Q3

REPORT INFORMATION
  Report Type: 
  Country: None (occurrence: None)
  Receive Date: 20060731
  Receipt Date: 20051026
  Transmission Date: 20061208
  Serious: No
  Sender: FDA-Public Use
  Company Number: US-JNJFOC-20051006212

PATIENT
  Age: 11 Year
  Sex: Male
  Weight: 26.7622 kg

DRUGS (1)
  1. RISPERDAL [Suspect]
     Indication: AUTISM
     Dosage: 1 MG, 2 IN 1 DAY, ORAL
     Route: 048
     Dates: start: 20050301

REACTIONS (1)
  - DROOLING [None]
